FAERS Safety Report 10347682 (Version 1)
Quarter: 2014Q3

REPORT INFORMATION
  Report Type: Spontaneous
  Country: US (occurrence: US)
  Receive Date: 20140729
  Receipt Date: 20140729
  Transmission Date: 20150326
  Serious: Yes (Other)
  Sender: FDA-Public Use
  Company Number: US-ACTAVIS-2014-16106

PATIENT
  Age: 57 Year
  Sex: Female

DRUGS (3)
  1. HYDROCODONE BITARTRATE/ACETAMINOPHEN 7.5/325 MG (WATSON LABORATORIES) [Suspect]
     Active Substance: ACETAMINOPHEN\HYDROCODONE BITARTRATE
     Indication: PAIN
     Dosage: UNK
     Route: 048
     Dates: start: 20140710, end: 20140710
  2. INSULIN [Concomitant]
     Active Substance: INSULIN NOS
     Indication: DIABETES MELLITUS
     Dosage: UNK
     Route: 058
  3. CAPSAICIN [Concomitant]
     Active Substance: CAPSAICIN
     Indication: PAIN
     Dosage: UNK
     Route: 061

REACTIONS (2)
  - Hypertension [Recovered/Resolved]
  - Feeling abnormal [Recovered/Resolved]

NARRATIVE: CASE EVENT DATE: 20140710
